FAERS Safety Report 4587631-3 (Version None)
Quarter: 2005Q1

REPORT INFORMATION
  Report Type: 
  Country: None (occurrence: None)
  Receive Date: 20050211
  Receipt Date: 20050125
  Transmission Date: 20050727
  Serious: Yes (Death, Hospitalization, Disabling)
  Sender: FDA-Public Use
  Company Number: WAES 0408USA01462

PATIENT
  Age: 82 Year
  Sex: Female

DRUGS (8)
  1. COZAAR [Suspect]
     Indication: HYPERTENSION
     Dosage: 25 MG/DAILY PO
     Route: 048
     Dates: start: 20011217, end: 20040520
  2. BUFFERIN [Suspect]
     Indication: CEREBRAL INFARCTION
     Dosage: 81 MG/DAILY PO
     Route: 048
     Dates: start: 19980624, end: 20031010
  3. BUFFERIN [Suspect]
     Indication: MYOCARDIAL ISCHAEMIA
     Dosage: 81 MG/DAILY PO
     Route: 048
     Dates: start: 19980624, end: 20031010
  4. MOBIC [Suspect]
     Indication: BACK PAIN
     Dosage: 10 MG/DAILY PO
     Route: 048
     Dates: start: 20011217, end: 20031010
  5. ALDACTONE [Concomitant]
  6. AMARYL [Concomitant]
  7. BASEN [Concomitant]
  8. ZANTAC [Concomitant]

REACTIONS (4)
  - CEREBRAL HAEMORRHAGE [None]
  - CEREBRAL INFARCTION [None]
  - PNEUMONIA [None]
  - RESPIRATORY FAILURE [None]
